FAERS Safety Report 10177732 (Version 1)
Quarter: 2014Q2

REPORT INFORMATION
  Report Type: Spontaneous
  Country: US (occurrence: US)
  Receive Date: 20140516
  Receipt Date: 20140516
  Transmission Date: 20141212
  Serious: No
  Sender: FDA-Public Use
  Company Number: US-SANOFI-AVENTIS-2013SA043927

PATIENT
  Age: 49 Year
  Sex: Male

DRUGS (2)
  1. APIDRA [Suspect]
     Indication: TYPE 1 DIABETES MELLITUS
  2. LEVEMIR INSULIN [Suspect]

REACTIONS (5)
  - Skin test positive [Unknown]
  - Blood test abnormal [Unknown]
  - Rash [Unknown]
  - Pruritus [Unknown]
  - Burning sensation [Unknown]
